FAERS Safety Report 24940804 (Version 2)
Quarter: 2025Q1

REPORT INFORMATION
  Report Type: Report from Study
  Country: IN (occurrence: IN)
  Receive Date: 20250207
  Receipt Date: 20250306
  Transmission Date: 20250408
  Serious: Yes (Hospitalization)
  Sender: ROCHE
  Company Number: IN-ROCHE-10000197012

PATIENT
  Age: 64 Year
  Sex: Male

DRUGS (1)
  1. TECENTRIQ [Suspect]
     Active Substance: ATEZOLIZUMAB
     Indication: Hepatocellular carcinoma
     Dosage: FREQUENCY 1 INTERVAL 21 DAY
     Route: 042
     Dates: start: 20241127

REACTIONS (5)
  - Off label use [Unknown]
  - Abdominal pain [Unknown]
  - Abdominal distension [Unknown]
  - Ascites [Unknown]
  - Asthenia [Unknown]
